FAERS Safety Report 9915591 (Version 1)
Quarter: 2014Q1

REPORT INFORMATION
  Report Type: Spontaneous
  Country: IT (occurrence: IT)
  Receive Date: 20140221
  Receipt Date: 20140221
  Transmission Date: 20141002
  Serious: Yes (Other)
  Sender: FDA-Public Use
  Company Number: IT-DRREDDYS-GER/ITL/14/0038217

PATIENT
  Age: 56 Year
  Sex: Male

DRUGS (1)
  1. LANSOPRAZOLE [Suspect]
     Indication: GASTRODUODENITIS
     Route: 048
     Dates: start: 20140213, end: 20140213

REACTIONS (2)
  - Erythema [Recovering/Resolving]
  - Periorbital oedema [Recovering/Resolving]
